FAERS Safety Report 5428917-X (Version None)
Quarter: 2007Q3

REPORT INFORMATION
  Report Type: 
  Country: None (occurrence: None)
  Receive Date: 20070829
  Receipt Date: 20070316
  Transmission Date: 20080115
  Serious: Yes (Hospitalization)
  Sender: FDA-Public Use
  Company Number: IN-ELI_LILLY_AND_COMPANY-IN200703003687

PATIENT
  Age: 68 Year
  Sex: Female

DRUGS (3)
  1. FORTEO [Suspect]
     Indication: OSTEOPOROSIS
     Dosage: 20 UG, DAILY (1/D)
     Route: 058
     Dates: start: 20070204, end: 20070219
  2. METHYLPREDNISOLONE 16MG TAB [Concomitant]
     Indication: RHEUMATOID ARTHRITIS
     Dosage: 4 MG, DAILY (1/D)
     Route: 048
  3. METHOTREXATE [Concomitant]
     Indication: RHEUMATOID ARTHRITIS
     Dosage: 5 MG, WEEKLY (1/W)
     Route: 058

REACTIONS (2)
  - HAEMATOCHEZIA [None]
  - LARGE INTESTINAL ULCER HAEMORRHAGE [None]
